FAERS Safety Report 7201785-1 (Version None)
Quarter: 2010Q4

REPORT INFORMATION
  Report Type: 
  Country: None (occurrence: None)
  Receive Date: 20101229
  Receipt Date: 20101222
  Transmission Date: 20110411
  Serious: Yes (Other)
  Sender: FDA-Public Use
  Company Number: CA-ROCHE-750523

PATIENT
  Sex: Female
  Weight: 63.7 kg

DRUGS (3)
  1. RIBAVIRIN [Suspect]
     Indication: HEPATITIS C
     Route: 065
  2. PEGINTERFERON ALFA-2A [Suspect]
     Indication: HEPATITIS C
     Route: 065
  3. BLINDED BI 201335 [Suspect]
     Indication: HEPATITIS C
     Route: 065

REACTIONS (1)
  - OVARIAN CYST RUPTURED [None]
